FAERS Safety Report 16949807 (Version 1)
Quarter: 2019Q4

REPORT INFORMATION
  Report Type: Spontaneous
  Country: LB (occurrence: LB)
  Receive Date: 20191023
  Receipt Date: 20191023
  Transmission Date: 20200122
  Serious: Yes (Hospitalization)
  Sender: FDA-Public Use
  Company Number: LB-EMD SERONO-9124031

PATIENT
  Age: 50 Year

DRUGS (1)
  1. REBIF [Suspect]
     Active Substance: INTERFERON BETA-1A
     Indication: PRODUCT USED FOR UNKNOWN INDICATION
     Dosage: THE PATIENT WAS ON REBIF SINCE 12 YEARS.

REACTIONS (3)
  - Asthenia [Unknown]
  - Ejection fraction decreased [Unknown]
  - Bronchitis [Unknown]
